FAERS Safety Report 8115296-2 (Version None)
Quarter: 2012Q1

REPORT INFORMATION
  Report Type: 
  Country: None (occurrence: None)
  Receive Date: 20120201
  Receipt Date: 20120123
  Transmission Date: 20120608
  Serious: Yes (Hospitalization)
  Sender: FDA-Public Use
  Company Number: AUR-APL-2012-00653

PATIENT
  Age: 20 Year
  Sex: Male

DRUGS (3)
  1. RISPERIDONE [Suspect]
     Indication: PSYCHOPATHIC PERSONALITY
     Dosage: (1.25 MG, 1 D),
  2. RISPERIDONE [Suspect]
     Indication: MILD MENTAL RETARDATION
     Dosage: (1.25 MG, 1 D),
  3. FINGOLIMOD (FINGOLIMOD) [Suspect]
     Indication: PRODUCT USED FOR UNKNOWN INDICATION
     Dosage: (0.5 MG), ORAL
     Route: 048

REACTIONS (7)
  - BRADYCARDIA [None]
  - CARDIAC ARREST [None]
  - NAUSEA [None]
  - CONVULSION [None]
  - MULTIPLE SCLEROSIS RELAPSE [None]
  - MALAISE [None]
  - UNRESPONSIVE TO STIMULI [None]
